FAERS Safety Report 10642529 (Version 1)
Quarter: 2014Q4

REPORT INFORMATION
  Report Type: Spontaneous
  Country: US (occurrence: None)
  Receive Date: 20141208
  Receipt Date: 20141208
  Transmission Date: 20150529
  Serious: Yes (Other)
  Sender: FDA-Public Use
  Company Number: None

PATIENT
  Age: 45 Year
  Sex: Female
  Weight: 102.51 kg

DRUGS (2)
  1. AMITRIPTYLINE [Suspect]
     Active Substance: AMITRIPTYLINE
     Indication: FALL
     Dosage: 1/2 25MG PILL
     Route: 048
     Dates: start: 20141202, end: 20141206
  2. AMITRIPTYLINE [Suspect]
     Active Substance: AMITRIPTYLINE
     Indication: FACE INJURY
     Dosage: 1/2 25MG PILL
     Route: 048
     Dates: start: 20141202, end: 20141206

REACTIONS (6)
  - Diarrhoea [None]
  - Flatulence [None]
  - Gastrointestinal pain [None]
  - Somnolence [None]
  - Eructation [None]
  - Vomiting [None]

NARRATIVE: CASE EVENT DATE: 20141202
